APPROVED DRUG PRODUCT: NABUMETONE
Active Ingredient: NABUMETONE
Strength: 750MG
Dosage Form/Route: TABLET;ORAL
Application: A075189 | Product #002
Applicant: IMPAX LABORATORIES INC
Approved: Sep 24, 2001 | RLD: No | RS: No | Type: DISCN